FAERS Safety Report 21299433 (Version 2)
Quarter: 2022Q3

REPORT INFORMATION
  Report Type: Spontaneous
  Country: US (occurrence: US)
  Receive Date: 20220906
  Receipt Date: 20220928
  Transmission Date: 20221027
  Serious: Yes (Other)
  Sender: FDA-Public Use
  Company Number: US-BAYER-2022A122010

PATIENT
  Age: 29 Year
  Sex: Male

DRUGS (2)
  1. JIVI [Suspect]
     Active Substance: DAMOCTOCOG ALFA PEGOL
     Dosage: 4962 U, OW
     Route: 042
  2. JIVI [Suspect]
     Active Substance: DAMOCTOCOG ALFA PEGOL
     Dosage: 4962 U, PRN (FOR BLEED)
     Route: 042

REACTIONS (2)
  - Traumatic haemorrhage [Recovered/Resolved]
  - Limb injury [None]

NARRATIVE: CASE EVENT DATE: 20220828
